FAERS Safety Report 24719355 (Version 1)
Quarter: 2024Q4

REPORT INFORMATION
  Report Type: Spontaneous
  Country: CN (occurrence: CN)
  Receive Date: 20241210
  Receipt Date: 20241210
  Transmission Date: 20250115
  Serious: Yes (Other)
  Sender: AUROBINDO
  Company Number: CN-AUROBINDO-AUR-APL-2024-059047

PATIENT
  Age: 27 Year
  Sex: Male

DRUGS (2)
  1. LEVETIRACETAM [Suspect]
     Active Substance: LEVETIRACETAM
     Indication: Juvenile myoclonic epilepsy
     Dosage: 500 MILLIGRAM, ONCE A DAY
     Route: 065
  2. VALPROATE [Suspect]
     Active Substance: VALPROIC ACID
     Indication: Juvenile myoclonic epilepsy
     Dosage: 1000 MILLIGRAM, ONCE A DAY
     Route: 048

REACTIONS (1)
  - Drug ineffective [Unknown]
